FAERS Safety Report 14666860 (Version 1)
Quarter: 2018Q1

REPORT INFORMATION
  Report Type: Spontaneous
  Country: US (occurrence: US)
  Receive Date: 20180322
  Receipt Date: 20180322
  Transmission Date: 20180509
  Serious: No
  Sender: FDA-Public Use
  Company Number: US-CELGENEUS-USA-20180305062

PATIENT
  Age: 71 Year
  Sex: Female

DRUGS (1)
  1. OTEZLA [Suspect]
     Active Substance: APREMILAST
     Indication: PSORIATIC ARTHROPATHY
     Dosage: 10,20, 30 MILLIGRAM TITRATION PACK
     Route: 048
     Dates: start: 20180309

REACTIONS (5)
  - Musculoskeletal stiffness [Unknown]
  - Pain [Unknown]
  - Back pain [Unknown]
  - Insomnia [Unknown]
  - Muscle spasms [Unknown]

NARRATIVE: CASE EVENT DATE: 201803
